FAERS Safety Report 18582218 (Version 1)
Quarter: 2020Q4

REPORT INFORMATION
  Report Type: Spontaneous
  Country: CN (occurrence: CN)
  Receive Date: 20201204
  Receipt Date: 20201204
  Transmission Date: 20210114
  Serious: Yes (Hospitalization)
  Sender: FDA-Public Use
  Company Number: CN-TEVA-2020-CN-1856165

PATIENT
  Age: 48 Year
  Sex: Male

DRUGS (10)
  1. TIGECYCLINE. [Interacting]
     Active Substance: TIGECYCLINE
     Indication: ANTIBIOTIC PROPHYLAXIS
     Dosage: DRIP
     Route: 042
  2. TACROLIMUS. [Interacting]
     Active Substance: TACROLIMUS
     Indication: IMMUNOSUPPRESSANT DRUG THERAPY
     Route: 065
  3. PREDNISOLONE. [Concomitant]
     Active Substance: PREDNISOLONE
     Indication: IMMUNOSUPPRESSANT DRUG THERAPY
     Route: 065
  4. MICAFUNGIN. [Concomitant]
     Active Substance: MICAFUNGIN SODIUM
     Indication: ANTIFUNGAL PROPHYLAXIS
     Dosage: DRIP
     Route: 042
  5. LINEZOLID. [Concomitant]
     Active Substance: LINEZOLID
     Indication: ANTIBIOTIC PROPHYLAXIS
     Dosage: DRIP
     Route: 041
  6. MYCOPHENOLATE MOFETIL. [Concomitant]
     Active Substance: MYCOPHENOLATE MOFETIL
     Indication: IMMUNOSUPPRESSANT DRUG THERAPY
     Route: 065
  7. CEFOPERAZONE-SULBACTAM [Concomitant]
     Active Substance: CEFOPERAZONE\SULBACTAM
     Indication: ANTIBIOTIC PROPHYLAXIS
     Dosage: DRIP
     Route: 042
  8. MEROPENEM. [Concomitant]
     Active Substance: MEROPENEM
     Indication: ANTIBIOTIC PROPHYLAXIS
     Dosage: PUMP (EXTENDED)
     Route: 041
  9. ANTI-THYMOCYTE GLOBULIN (RABBIT) NOS [Suspect]
     Active Substance: LAPINE T-LYMPHOCYTE IMMUNE GLOBULIN
     Indication: TRANSPLANT REJECTION
     Dosage: DRIP
     Route: 042
  10. CYCLOSPORINE A [Suspect]
     Active Substance: CYCLOSPORINE
     Indication: IMMUNOSUPPRESSANT DRUG THERAPY
     Route: 065

REACTIONS (6)
  - Vomiting [Recovering/Resolving]
  - Diarrhoea [Recovering/Resolving]
  - Nephropathy toxic [Recovering/Resolving]
  - Drug interaction [Recovering/Resolving]
  - Pancreatitis acute [Recovering/Resolving]
  - Klebsiella infection [Recovering/Resolving]
